FAERS Safety Report 23357686 (Version 6)
Quarter: 2024Q4

REPORT INFORMATION
  Report Type: Spontaneous
  Country: IT (occurrence: IT)
  Receive Date: 20240102
  Receipt Date: 20241204
  Transmission Date: 20250115
  Serious: Yes (Life-Threatening, Other)
  Sender: MYLAN
  Company Number: IT-SAMSUNG BIOEPIS-SB-2023-33472

PATIENT
  Age: 20 Year
  Sex: Male

DRUGS (30)
  1. PREDNISONE [Suspect]
     Active Substance: PREDNISONE
     Indication: Still^s disease
     Dosage: 0.15 MILLIGRAM/KILOGRAM, QD
     Route: 048
  2. PREDNISONE [Suspect]
     Active Substance: PREDNISONE
     Indication: Haemophagocytic lymphohistiocytosis
     Dosage: 5 MILLIGRAM, QD
     Route: 065
     Dates: start: 202007
  3. AZATHIOPRINE [Suspect]
     Active Substance: AZATHIOPRINE
     Indication: Haemophagocytic lymphohistiocytosis
     Dosage: 2 MILLIGRAM/KILOGRAM, QD
     Route: 048
  4. METHOTREXATE [Suspect]
     Active Substance: METHOTREXATE
     Indication: Still^s disease
     Dosage: 15 MILLIGRAM/SQ. METER, QW
     Route: 058
     Dates: start: 200408, end: 200603
  5. METHOTREXATE [Suspect]
     Active Substance: METHOTREXATE
     Indication: Haemophagocytic lymphohistiocytosis
     Dosage: 15 MILLIGRAM, QW
     Route: 058
     Dates: start: 202007
  6. ANAKINRA [Suspect]
     Active Substance: ANAKINRA
     Indication: Haemophagocytic lymphohistiocytosis
     Dosage: 300 MILLIGRAM, QD
     Route: 042
  7. ANAKINRA [Suspect]
     Active Substance: ANAKINRA
     Indication: Still^s disease
     Dosage: UNK, QD, 2 - 5 MG/KG/DAY UP TO 100 MG/DAY
     Route: 042
     Dates: start: 200804, end: 200806
  8. ANAKINRA [Suspect]
     Active Substance: ANAKINRA
     Dosage: UNK, QD, 2 - 5 MG/KG/DAY UP TO 100 MG/DAY
     Route: 042
     Dates: start: 200507
  9. ANAKINRA [Suspect]
     Active Substance: ANAKINRA
     Dosage: UNK, QD,2 - 5 MG/KG/DAY UP TO 100 MG/DAY
     Route: 042
     Dates: start: 200512
  10. CYCLOSPORINE [Suspect]
     Active Substance: CYCLOSPORINE
     Indication: Haemophagocytic lymphohistiocytosis
     Dosage: 100 MILLIGRAM, BID (TWICE A DAY)
     Route: 065
  11. CYCLOSPORINE [Suspect]
     Active Substance: CYCLOSPORINE
     Indication: Still^s disease
     Dosage: 3-4 MG/KG/DAY ORAL OR 2 MG/KG/DAY
     Route: 065
     Dates: start: 200606, end: 201011
  12. BARICITINIB [Suspect]
     Active Substance: BARICITINIB
     Indication: Still^s disease
     Dosage: 4 MILLIGRAM, QD
     Route: 048
     Dates: start: 202007
  13. BARICITINIB [Suspect]
     Active Substance: BARICITINIB
     Indication: Haemophagocytic lymphohistiocytosis
  14. THALIDOMIDE [Suspect]
     Active Substance: THALIDOMIDE
     Indication: Still^s disease
     Dosage: 2.5 MILLIGRAM/KILOGRAM, QD
     Route: 048
     Dates: start: 200807, end: 200901
  15. THALIDOMIDE [Suspect]
     Active Substance: THALIDOMIDE
     Indication: Haemophagocytic lymphohistiocytosis
     Dosage: 2.5 MILLIGRAM/KILOGRAM, QD
     Route: 048
     Dates: start: 200508, end: 200512
  16. THALIDOMIDE [Suspect]
     Active Substance: THALIDOMIDE
     Dosage: 2.5 MILLIGRAM/KILOGRAM, QD
     Route: 048
     Dates: start: 200408, end: 200507
  17. THALIDOMIDE [Suspect]
     Active Substance: THALIDOMIDE
     Dosage: 2.5 MILLIGRAM/KILOGRAM, QD
     Route: 048
     Dates: start: 200606, end: 200606
  18. ADALIMUMAB [Suspect]
     Active Substance: ADALIMUMAB
     Indication: Still^s disease
     Dosage: 20 MILLIGRAM, Q2W
     Route: 058
     Dates: start: 200608
  19. ADALIMUMAB [Suspect]
     Active Substance: ADALIMUMAB
     Indication: Haemophagocytic lymphohistiocytosis
     Dosage: 40 MILLIGRAM, Q2W
     Route: 058
     Dates: start: 201308, end: 201310
  20. TOCILIZUMAB [Suspect]
     Active Substance: TOCILIZUMAB
     Indication: Haemophagocytic lymphohistiocytosis
     Dosage: 12 MILLIGRAM/KILOGRAM, Q2W
     Route: 065
     Dates: start: 200701, end: 200702
  21. TOCILIZUMAB [Suspect]
     Active Substance: TOCILIZUMAB
     Indication: Still^s disease
  22. METHYLPREDNISOLONE [Suspect]
     Active Substance: METHYLPREDNISOLONE
     Indication: Haemophagocytic lymphohistiocytosis
     Dosage: UNK
     Route: 042
     Dates: start: 202202
  23. ABATACEPT [Suspect]
     Active Substance: ABATACEPT
     Indication: Still^s disease
     Dosage: 10 MILLIGRAM/KILOGRAM, Q28D 10 MG/KG EVERY 4 WEEKS
     Route: 042
     Dates: start: 200807, end: 200812
  24. ABATACEPT [Suspect]
     Active Substance: ABATACEPT
     Indication: Haemophagocytic lymphohistiocytosis
  25. CYCLOSPORINE [Concomitant]
     Active Substance: CYCLOSPORINE
     Indication: Still^s disease
     Dosage: UNK
     Route: 065
  26. CYCLOSPORINE [Concomitant]
     Active Substance: CYCLOSPORINE
     Dosage: 100 MILLIGRAM, BID
     Route: 065
  27. ETANERCEPT [Concomitant]
     Active Substance: ETANERCEPT
     Indication: Haemophagocytic lymphohistiocytosis
     Dosage: 1 WEEK
     Route: 058
  28. CANAKINUMAB [Concomitant]
     Active Substance: CANAKINUMAB
     Indication: Haemophagocytic lymphohistiocytosis
     Dosage: 300 MILLIGRAM, 4 WEEKS
     Route: 065
  29. NIRMATRELVIR\RITONAVIR [Concomitant]
     Active Substance: NIRMATRELVIR\RITONAVIR
     Indication: COVID-19
     Dosage: UNK
     Route: 065
  30. ENOXAPARIN [Concomitant]
     Active Substance: ENOXAPARIN
     Indication: Prophylaxis
     Dosage: UNK
     Route: 065

REACTIONS (8)
  - Drug ineffective [Unknown]
  - Sepsis [Unknown]
  - Pneumocystis jirovecii pneumonia [Unknown]
  - Osteoporosis [Unknown]
  - Varicella zoster virus infection [Unknown]
  - Cytomegalovirus infection reactivation [Unknown]
  - Oesophageal candidiasis [Unknown]
  - Pseudomonas infection [Unknown]
